FAERS Safety Report 4530179-2 (Version None)
Quarter: 2004Q4

REPORT INFORMATION
  Report Type: 
  Country: None (occurrence: None)
  Receive Date: 20041215
  Receipt Date: 20041215
  Transmission Date: 20050328
  Serious: Yes (Other)
  Sender: FDA-Public Use
  Company Number: None

PATIENT
  Age: 40 Year
  Sex: Male
  Weight: 77.1115 kg

DRUGS (1)
  1. LEVAQUIN [Suspect]
     Indication: RESPIRATORY TRACT INFECTION
     Dosage: 1 DAY ORAL
     Route: 048
     Dates: start: 20041201, end: 20041209

REACTIONS (4)
  - CHILLS [None]
  - DIZZINESS [None]
  - INSOMNIA [None]
  - PAIN IN EXTREMITY [None]
